FAERS Safety Report 18957576 (Version 1)
Quarter: 2021Q1

REPORT INFORMATION
  Report Type: Spontaneous
  Country: US (occurrence: US)
  Receive Date: 20210302
  Receipt Date: 20210302
  Transmission Date: 20210420
  Serious: Yes (Disabling, Other)
  Sender: FDA-Public Use
  Company Number: None

PATIENT
  Age: 27 Year
  Sex: Male
  Weight: 72 kg

DRUGS (1)
  1. CLARAVIS [Suspect]
     Active Substance: ISOTRETINOIN
     Indication: ACNE

REACTIONS (11)
  - Tunnel vision [None]
  - Sexual dysfunction [None]
  - Hyperhidrosis [None]
  - Hypohidrosis [None]
  - Depression [None]
  - Suicidal ideation [None]
  - Feeling cold [None]
  - Tremor [None]
  - Anxiety [None]
  - Alopecia [None]
  - Dizziness [None]
